FAERS Safety Report 6079825-5 (Version None)
Quarter: 2009Q1

REPORT INFORMATION
  Report Type: 
  Country: None (occurrence: None)
  Receive Date: 20090212
  Receipt Date: 20090204
  Transmission Date: 20090719
  Serious: Yes (Hospitalization)
  Sender: FDA-Public Use
  Company Number: 2009SP001551

PATIENT
  Age: 68 Year
  Sex: Female

DRUGS (4)
  1. INTERFERON [Suspect]
     Indication: HEPATITIS C
  2. NEORAL [Suspect]
     Indication: LIVER TRANSPLANT
     Dosage: 75 MG;BID; 50 MG;BID
     Dates: start: 20070925
  3. NEORAL [Suspect]
     Indication: LIVER TRANSPLANT
     Dosage: 75 MG;BID; 50 MG;BID
     Dates: start: 20090105
  4. RIBAVIRIN [Concomitant]

REACTIONS (5)
  - DISEASE PROGRESSION [None]
  - DRUG INEFFECTIVE [None]
  - NEUTROPENIA [None]
  - OSTEOMYELITIS [None]
  - OTITIS EXTERNA [None]
